FAERS Safety Report 5742095-9 (Version None)
Quarter: 2008Q2

REPORT INFORMATION
  Report Type: 
  Country: None (occurrence: None)
  Receive Date: 20080519
  Receipt Date: 20080505
  Transmission Date: 20081010
  Serious: Yes (Life-Threatening, Hospitalization, Other)
  Sender: FDA-Public Use
  Company Number: US-MERCK-0804USA01369

PATIENT
  Age: 16 Year
  Sex: Female

DRUGS (10)
  1. SINGULAIR [Suspect]
     Indication: ASTHMA
     Route: 048
     Dates: start: 20060401, end: 20080401
  2. ZYRTEC [Concomitant]
     Route: 065
  3. FLONASE [Concomitant]
     Route: 065
  4. FLOVENT [Concomitant]
     Route: 065
  5. PRILOSEC [Concomitant]
     Route: 065
  6. ALBUTEROL [Concomitant]
     Route: 065
  7. TYLENOL [Suspect]
     Route: 065
     Dates: start: 20071001, end: 20071001
  8. PREDNISONE [Concomitant]
     Route: 065
  9. BENADRYL [Suspect]
     Route: 065
     Dates: start: 20071001, end: 20071001
  10. IBUPROFEN [Suspect]
     Route: 065
     Dates: start: 20071001, end: 20071001

REACTIONS (7)
  - ANHEDONIA [None]
  - INSOMNIA [None]
  - INTENTIONAL OVERDOSE [None]
  - SINUSITIS [None]
  - SOCIAL AVOIDANT BEHAVIOUR [None]
  - SUICIDAL IDEATION [None]
  - SUICIDE ATTEMPT [None]
